FAERS Safety Report 5589844-0 (Version None)
Quarter: 2008Q1

REPORT INFORMATION
  Report Type: 
  Country: None (occurrence: None)
  Receive Date: 20080114
  Receipt Date: 20080109
  Transmission Date: 20080703
  Serious: Yes (Life-Threatening, Hospitalization)
  Sender: FDA-Public Use
  Company Number: AU-MERCK-0801AUS00056

PATIENT
  Age: 79 Year
  Sex: Female
  Weight: 91 kg

DRUGS (9)
  1. ZOCOR [Suspect]
     Route: 048
     Dates: end: 20070316
  2. LANSOPRAZOLE [Concomitant]
     Route: 065
  3. BORON (UNSPECIFIED) AND CALCIUM CARBONATE AND CHOLECALCIFEROL AND COPP [Concomitant]
     Route: 065
  4. GLUCOSAMINE HYDROCHLORIDE [Concomitant]
     Route: 065
  5. BUPRENORPHINE [Concomitant]
     Route: 065
  6. SIMVASTATIN [Suspect]
     Route: 065
  7. ASPIRIN [Suspect]
     Route: 048
     Dates: end: 20070316
  8. ACETAMINOPHEN [Suspect]
     Route: 048
     Dates: end: 20070316
  9. TELMISARTAN [Suspect]
     Route: 048
     Dates: end: 20070316

REACTIONS (5)
  - ANOREXIA [None]
  - HEPATITIS [None]
  - MALAISE [None]
  - NAUSEA [None]
  - WEIGHT DECREASED [None]
